FAERS Safety Report 8552710-2 (Version None)
Quarter: 2012Q3

REPORT INFORMATION
  Report Type: 
  Country: None (occurrence: None)
  Receive Date: 20120731
  Receipt Date: 20120719
  Transmission Date: 20120928
  Serious: Yes (Hospitalization)
  Sender: FDA-Public Use
  Company Number: PHHY2010US76105

PATIENT
  Sex: Male

DRUGS (3)
  1. GLEEVEC [Suspect]
     Indication: MALIGNANT SOFT TISSUE NEOPLASM
     Dosage: 400 MG DAILY
     Route: 048
     Dates: start: 20101006
  2. GLEEVEC [Suspect]
     Dosage: 400 MG, QD
     Route: 048
     Dates: start: 20110426
  3. BYSTOLIC [Concomitant]
     Indication: BLOOD PRESSURE

REACTIONS (13)
  - GASTRIC NEOPLASM [None]
  - ORTHOSTATIC HYPOTENSION [None]
  - DIZZINESS [None]
  - EYE SWELLING [None]
  - RETCHING [None]
  - NAUSEA [None]
  - PERIORBITAL OEDEMA [None]
  - RASH [None]
  - NEOPLASM MALIGNANT [None]
  - OEDEMA PERIPHERAL [None]
  - FATIGUE [None]
  - PRURITUS [None]
  - DYSPNOEA [None]
